FAERS Safety Report 5469174-8 (Version None)
Quarter: 2007Q3

REPORT INFORMATION
  Report Type: 
  Country: None (occurrence: None)
  Receive Date: 20070820
  Receipt Date: 20070630
  Transmission Date: 20080115
  Serious: No
  Sender: FDA-Public Use
  Company Number: WAES 0707USA00117

PATIENT
  Age: 74 Year
  Sex: Female

DRUGS (1)
  1. JANUVIA [Suspect]
     Dosage: PO
     Route: 048

REACTIONS (1)
  - RASH PRURITIC [None]
